FAERS Safety Report 5322774-8 (Version None)
Quarter: 2007Q2

REPORT INFORMATION
  Report Type: 
  Country: None (occurrence: None)
  Receive Date: 20070511
  Receipt Date: 20070501
  Transmission Date: 20071010
  Serious: Yes (Death, Life-Threatening, Hospitalization)
  Sender: FDA-Public Use
  Company Number: CA-GENENTECH-218262

PATIENT
  Sex: Male
  Weight: 70.2 kg

DRUGS (1)
  1. RITUXIMAB [Suspect]
     Indication: MULTIPLE SCLEROSIS
     Dosage: 1000 MG, DAYS 1+15
     Route: 042
     Dates: start: 20050704, end: 20050718

REACTIONS (1)
  - PNEUMONIA [None]
